FAERS Safety Report 6518822-X (Version None)
Quarter: 2009Q4

REPORT INFORMATION
  Report Type: 
  Country: None (occurrence: None)
  Receive Date: 20091228
  Receipt Date: 20091216
  Transmission Date: 20100525
  Serious: Yes (Hospitalization, Disabling, Other)
  Sender: FDA-Public Use
  Company Number: US-JNJFOC-20091005370

PATIENT
  Sex: Female

DRUGS (20)
  1. DOXIL [Suspect]
     Indication: MULTIPLE MYELOMA
     Route: 042
  2. DOXIL [Suspect]
     Route: 042
  3. VELCADE [Suspect]
     Indication: MULTIPLE MYELOMA
     Route: 065
  4. DEXAMETHASONE [Suspect]
     Indication: MULTIPLE MYELOMA
     Route: 065
  5. REVLIMID [Suspect]
     Indication: MULTIPLE MYELOMA
     Route: 048
  6. REVLIMID [Suspect]
     Route: 048
  7. REVLIMID [Suspect]
     Route: 048
  8. FLAGYL [Concomitant]
     Route: 065
  9. FENTANYL-100 [Concomitant]
     Route: 065
  10. DIFLUCAN [Concomitant]
     Route: 065
  11. ALLOPURINOL [Concomitant]
     Route: 065
  12. VICODIN [Concomitant]
     Route: 065
  13. NEXIUM [Concomitant]
     Route: 065
  14. WELLBUTRIN [Concomitant]
     Route: 065
  15. LYRICA [Concomitant]
     Route: 065
  16. XANAX [Concomitant]
     Route: 065
  17. VITAMIN D [Concomitant]
     Route: 065
  18. ZOMETA [Concomitant]
     Route: 065
  19. DURAGESIC-100 [Concomitant]
     Route: 065
  20. LOMOTIL [Concomitant]
     Route: 065

REACTIONS (21)
  - ASTHENIA [None]
  - BLOOD PRESSURE INCREASED [None]
  - FATIGUE [None]
  - HYPOCALCAEMIA [None]
  - HYPOKALAEMIA [None]
  - HYPOMAGNESAEMIA [None]
  - INTERNATIONAL NORMALISED RATIO INCREASED [None]
  - MENTAL STATUS CHANGES [None]
  - MULTIPLE MYELOMA [None]
  - MYOPATHY [None]
  - NAUSEA [None]
  - NEUROPATHY PERIPHERAL [None]
  - ORAL CANDIDIASIS [None]
  - PANCYTOPENIA [None]
  - PNEUMONIA [None]
  - PURPURA [None]
  - RENAL FAILURE ACUTE [None]
  - SKIN ULCER [None]
  - UROSEPSIS [None]
  - VENOUS THROMBOSIS LIMB [None]
  - VULVAL ULCERATION [None]
